FAERS Safety Report 10276527 (Version 2)
Quarter: 2015Q1

REPORT INFORMATION
  Report Type: Spontaneous
  Country: GB (occurrence: GB)
  Receive Date: 20140703
  Receipt Date: 20150226
  Transmission Date: 20150720
  Serious: Yes (Other)
  Sender: FDA-Public Use
  Company Number: GB-TEVA-490104ISR

PATIENT
  Age: 60 Year
  Sex: Male
  Weight: 91 kg

DRUGS (17)
  1. FLECAINIDE [Concomitant]
     Active Substance: FLECAINIDE
  2. BEZAFIBRATE [Concomitant]
     Active Substance: BEZAFIBRATE
  3. DOXAZOSIN [Concomitant]
     Active Substance: DOXAZOSIN\DOXAZOSIN MESYLATE
  4. SALMETEROL [Concomitant]
     Active Substance: SALMETEROL
  5. TIOTROPIUM [Concomitant]
     Active Substance: TIOTROPIUM
     Route: 055
  6. CLENIL MODULITE [Concomitant]
     Active Substance: BECLOMETHASONE DIPROPIONATE
  7. DABIGATRAN [Interacting]
     Active Substance: DABIGATRAN
     Dosage: 220 MILLIGRAM DAILY;
  8. RAMIPRIL. [Concomitant]
     Active Substance: RAMIPRIL
  9. TRAMADOL [Suspect]
     Active Substance: TRAMADOL
     Indication: PAIN
     Dosage: 1-2 THREE TIMES A DAY.
     Route: 048
     Dates: start: 2000, end: 20140606
  10. OMEPRAZOLE. [Concomitant]
     Active Substance: OMEPRAZOLE
  11. DIGOXIN. [Concomitant]
     Active Substance: DIGOXIN
  12. DAPAGLIFLOZIN [Interacting]
     Active Substance: DAPAGLIFLOZIN
  13. LANTUS [Concomitant]
     Active Substance: INSULIN GLARGINE
  14. NOVORAPID [Concomitant]
     Active Substance: INSULIN ASPART
  15. SALBUTAMOL [Concomitant]
     Active Substance: ALBUTEROL
     Route: 055
  16. ISOSORBIDE MONONITRATE. [Concomitant]
     Active Substance: ISOSORBIDE MONONITRATE
  17. DICLOFENAC [Concomitant]
     Active Substance: DICLOFENAC

REACTIONS (4)
  - Depressed mood [Recovered/Resolved]
  - Blister [Recovered/Resolved]
  - Self-injurious ideation [Recovered/Resolved]
  - Drug interaction [Unknown]

NARRATIVE: CASE EVENT DATE: 20140501
